FAERS Safety Report 5660337-5 (Version None)
Quarter: 2008Q1

REPORT INFORMATION
  Report Type: 
  Country: None (occurrence: None)
  Receive Date: 20080311
  Receipt Date: 20071003
  Transmission Date: 20080703
  Serious: No
  Sender: FDA-Public Use
  Company Number: US-BAYER-200713218BCC

PATIENT
  Age: 89 Year
  Sex: Female
  Weight: 50 kg

DRUGS (9)
  1. ALEVE [Suspect]
     Indication: ARTHRITIS
     Dosage: TOTAL DAILY DOSE: 440 MG  UNIT DOSE: 220 MG
     Route: 048
     Dates: start: 20070901
  2. ALEVE [Suspect]
     Dosage: TOTAL DAILY DOSE: 220 MG  UNIT DOSE: 220 MG
     Route: 048
  3. SPIRONOLACTONE [Concomitant]
  4. PREDNISONE TAB [Concomitant]
  5. BONIVA [Concomitant]
  6. TUMS [Concomitant]
  7. GAS X [Concomitant]
  8. CENTRUM SILVER [Concomitant]
  9. TYLENOL (CAPLET) [Concomitant]
     Dosage: TOTAL DAILY DOSE: 1300 MG  UNIT DOSE: 650 MG
     Route: 048

REACTIONS (1)
  - HYPERTENSION [None]
